FAERS Safety Report 6017379-X (Version None)
Quarter: 2008Q4

REPORT INFORMATION
  Report Type: 
  Country: None (occurrence: None)
  Receive Date: 20081223
  Receipt Date: 20081212
  Transmission Date: 20090506
  Serious: Yes (Other)
  Sender: FDA-Public Use
  Company Number: PHHY2008GB27483

PATIENT

DRUGS (1)
  1. SALAGEN [Suspect]

REACTIONS (2)
  - DYSPHAGIA [None]
  - SURGERY [None]
